FAERS Safety Report 21290986 (Version 6)
Quarter: 2023Q1

REPORT INFORMATION
  Report Type: Spontaneous
  Country: ES (occurrence: ES)
  Receive Date: 20220903
  Receipt Date: 20230127
  Transmission Date: 20230417
  Serious: Yes (Disabling, Other)
  Sender: FDA-Public Use
  Company Number: ES-NOVARTISPH-NVSC2022ES197916

PATIENT
  Age: 62 Year
  Sex: Male
  Weight: 88 kg

DRUGS (1)
  1. PRAMIPEXOLE [Suspect]
     Active Substance: PRAMIPEXOLE
     Indication: Restless legs syndrome
     Dosage: 1.05 MG
     Route: 048
     Dates: start: 20170101, end: 20220830

REACTIONS (6)
  - Intestinal obstruction [Unknown]
  - Product residue present [Not Recovered/Not Resolved]
  - Product residue present [Not Recovered/Not Resolved]
  - Poor quality product administered [Unknown]
  - Constipation [Not Recovered/Not Resolved]
  - Defaecation disorder [Not Recovered/Not Resolved]

NARRATIVE: CASE EVENT DATE: 20220820
